FAERS Safety Report 19308810 (Version 1)
Quarter: 2021Q2

REPORT INFORMATION
  Report Type: Other
  Country: CA (occurrence: CA)
  Receive Date: 20210526
  Receipt Date: 20210526
  Transmission Date: 20210717
  Serious: Yes (Hospitalization)
  Sender: FDA-Public Use
  Company Number: CA-APOTEX-2021AP012234

PATIENT
  Age: 73 Year
  Sex: Male

DRUGS (1)
  1. APO?LEVOCARB ? TAB 10MG/100MG [Suspect]
     Active Substance: CARBIDOPA\LEVODOPA
     Indication: PARKINSON^S DISEASE
     Dosage: UNK
     Route: 065

REACTIONS (2)
  - Fall [Unknown]
  - Dizziness [Unknown]
